FAERS Safety Report 10454186 (Version 4)
Quarter: 2014Q4

REPORT INFORMATION
  Report Type: Report from Study
  Country: US (occurrence: US)
  Receive Date: 20140915
  Receipt Date: 20141104
  Transmission Date: 20150528
  Serious: Yes (Hospitalization)
  Sender: FDA-Public Use
  Company Number: US-BAYER-2014-070248

PATIENT
  Age: 71 Year
  Sex: Male

DRUGS (8)
  1. ADEMPAS [Suspect]
     Active Substance: RIOCIGUAT
     Indication: PULMONARY ARTERIAL HYPERTENSION
     Dosage: 2.5 UNK, UNK
     Route: 048
  2. ADEMPAS [Suspect]
     Active Substance: RIOCIGUAT
     Indication: PULMONARY ARTERIAL HYPERTENSION
     Dosage: 2 UNK, UNK
     Route: 048
  3. TORSEMIDE. [Suspect]
     Active Substance: TORSEMIDE
  4. ADEMPAS [Suspect]
     Active Substance: RIOCIGUAT
     Indication: PULMONARY ARTERIAL HYPERTENSION
     Dosage: 1.5 MG, TID
     Route: 048
     Dates: start: 20111209
  5. ADEMPAS [Suspect]
     Active Substance: RIOCIGUAT
     Indication: PULMONARY ARTERIAL HYPERTENSION
     Dosage: 2.5 MG, TID
     Route: 048
     Dates: start: 20140218
  6. XARELTO [Concomitant]
     Active Substance: RIVAROXABAN
  7. TYVASO [Concomitant]
     Active Substance: TREPROSTINIL
  8. ASPIRIN (E.C.) [ACETYLSALICYLIC ACID] [Concomitant]

REACTIONS (9)
  - Diarrhoea [None]
  - Joint swelling [None]
  - Hypotension [None]
  - Asthenia [Unknown]
  - Oxygen saturation decreased [Unknown]
  - Pain in extremity [None]
  - Back pain [None]
  - Heart rate increased [None]
  - Blood pressure systolic decreased [None]

NARRATIVE: CASE EVENT DATE: 201408
